FAERS Safety Report 8942732 (Version 1)
Quarter: 2012Q4

REPORT INFORMATION
  Report Type: 
  Country: DK (occurrence: DK)
  Receive Date: 20121204
  Receipt Date: 20121204
  Transmission Date: 20130627
  Serious: Yes (Other)
  Sender: FDA-Public Use
  Company Number: DK-PFIZER INC-2011081741

PATIENT
  Age: 65 Year
  Sex: Male

DRUGS (6)
  1. FLUOROURACIL [Suspect]
     Indication: COLON CANCER METASTATIC
     Dosage: bolus of 400 mg/m2 equaling 725 mg x 10
     Route: 040
     Dates: start: 20081128, end: 20090501
  2. FLUOROURACIL [Suspect]
     Dosage: 2400 mg/m2 equaling 4325 mg/m2 x10; IV bolus
     Route: 040
     Dates: start: 20081128, end: 20090406
  3. OXALIPLATIN [Suspect]
     Indication: COLON CANCER METASTATIC
     Dosage: 85 mg/m2 equaling 155 mg x 10
     Dates: start: 20081128, end: 20090406
  4. OXALIPLATIN [Suspect]
     Dosage: UNK
     Dates: start: 20081128, end: 20090506
  5. LEUCOVORIN [Suspect]
     Indication: METASTATIC COLON CANCER
     Dosage: 200 mg/m2 equaling 360 mg x 10
     Dates: start: 20081128, end: 20090501
  6. LEUCOVORIN [Suspect]
     Dosage: UNK

REACTIONS (5)
  - Thrombocytopenia [Recovered/Resolved]
  - Peripheral sensory neuropathy [Not Recovered/Not Resolved]
  - Paraesthesia [Not Recovered/Not Resolved]
  - Paraesthesia [Not Recovered/Not Resolved]
  - Fine motor delay [Not Recovered/Not Resolved]
